FAERS Safety Report 10554038 (Version 2)
Quarter: 2014Q4

REPORT INFORMATION
  Report Type: Spontaneous
  Country: GB (occurrence: GB)
  Receive Date: 20141030
  Receipt Date: 20141030
  Transmission Date: 20150529
  Serious: Yes (Other)
  Sender: FDA-Public Use
  Company Number: GB-UCBSA-2014003209

PATIENT
  Age: 61 Year
  Sex: Male

DRUGS (7)
  1. RASAGILINE [Concomitant]
     Active Substance: RASAGILINE
     Indication: PARKINSON^S DISEASE
     Dosage: UNK
  2. SERETIDE [Concomitant]
     Active Substance: FLUTICASONE FUROATE\SALMETEROL XINAFOATE
     Indication: CHRONIC OBSTRUCTIVE PULMONARY DISEASE
     Dosage: 250 MG, 2X/DAY (BID), INHALATION
  3. MADOPAR [Concomitant]
     Active Substance: BENSERAZIDE HYDROCHLORIDE\LEVODOPA
     Indication: PARKINSON^S DISEASE
     Dosage: 125 MG, ONCE DAILY (QD)
     Route: 048
  4. TIOTROPIUM [Concomitant]
     Active Substance: TIOTROPIUM
     Indication: CHRONIC OBSTRUCTIVE PULMONARY DISEASE
     Dosage: 18 MG, ONCE DAILY (QD), INHALATION
  5. NEUPRO [Suspect]
     Active Substance: ROTIGOTINE
     Indication: PARKINSON^S DISEASE
     Dosage: 24 MG, ONCE DAILY (QD)
     Route: 061
     Dates: start: 20140609, end: 20140621
  6. STALEVO [Concomitant]
     Active Substance: CARBIDOPA\ENTACAPONE\LEVODOPA
     Indication: PARKINSON^S DISEASE
     Dosage: 150, QM
  7. MADOPAR [Concomitant]
     Active Substance: BENSERAZIDE HYDROCHLORIDE\LEVODOPA
     Dosage: 62.5 MG, 4X/DAY (QID)
     Route: 048

REACTIONS (2)
  - Off label use [Unknown]
  - Overdose [Unknown]

NARRATIVE: CASE EVENT DATE: 20140609
